FAERS Safety Report 11228300 (Version 2)
Quarter: 2016Q3

REPORT INFORMATION
  Report Type: Spontaneous
  Country: US (occurrence: US)
  Receive Date: 20150630
  Receipt Date: 20160711
  Transmission Date: 20161109
  Serious: Yes (Death, Hospitalization, Other)
  Sender: FDA-Public Use
  Company Number: US-SHIRE-US201506547

PATIENT
  Age: 41 Year
  Sex: Female
  Weight: 61.8 kg

DRUGS (2)
  1. 433 (CARBAMAZEPINE) [Suspect]
     Active Substance: CARBAMAZEPINE
     Indication: PRODUCT USED FOR UNKNOWN INDICATION
     Dosage: UNK, UNKNOWN
     Route: 065
  2. VALPROIC ACID. [Suspect]
     Active Substance: VALPROIC ACID
     Indication: PRODUCT USED FOR UNKNOWN INDICATION
     Dosage: UNK, UNKNOWN
     Route: 065

REACTIONS (5)
  - Overdose [Fatal]
  - Cardiac arrest [Recovered/Resolved with Sequelae]
  - Compartment syndrome [Unknown]
  - Brain death [Not Recovered/Not Resolved]
  - Unresponsive to stimuli [Unknown]
